FAERS Safety Report 8795479 (Version 4)
Quarter: 2013Q1

REPORT INFORMATION
  Report Type: Spontaneous
  Country: US (occurrence: US)
  Receive Date: 20120917
  Receipt Date: 20130305
  Transmission Date: 20140127
  Serious: Yes (Other)
  Sender: FDA-Public Use
  Company Number: US-PFIZER INC-2012229639

PATIENT
  Age: 63 Year
  Sex: Female

DRUGS (2)
  1. LYRICA [Suspect]
     Indication: PAIN
     Dosage: 225 MG, 2X/DAY
     Dates: start: 20080901
  2. LYRICA [Suspect]
     Indication: FIBROMYALGIA
     Dosage: 225 MG, 2X/DAY
     Route: 048
     Dates: start: 20100910

REACTIONS (2)
  - Activities of daily living impaired [Unknown]
  - Pain [Unknown]
